FAERS Safety Report 5773997-5 (Version None)
Quarter: 2008Q2

REPORT INFORMATION
  Report Type: 
  Country: None (occurrence: None)
  Receive Date: 20080616
  Receipt Date: 20080605
  Transmission Date: 20081010
  Serious: Yes (Other)
  Sender: FDA-Public Use
  Company Number: AN-JNJFOC-20080601704

PATIENT
  Age: 34 Year
  Sex: Female

DRUGS (4)
  1. REMICADE [Suspect]
     Route: 042
  2. REMICADE [Suspect]
     Route: 042
  3. REMICADE [Suspect]
     Indication: PSORIASIS
     Route: 042
  4. PREDNISONE TAB [Concomitant]

REACTIONS (3)
  - ABDOMINAL PAIN [None]
  - APNOEA [None]
  - HYPERSENSITIVITY [None]
